FAERS Safety Report 7022828-4 (Version None)
Quarter: 2010Q3

REPORT INFORMATION
  Report Type: 
  Country: None (occurrence: None)
  Receive Date: 20100916
  Receipt Date: 20100603
  Transmission Date: 20110219
  Serious: No
  Sender: FDA-Public Use
  Company Number: DKLU1062766

PATIENT
  Age: 9 Month
  Sex: Female

DRUGS (4)
  1. SABRIL [Suspect]
     Indication: CONVULSION
     Dosage: 500 MG MILLIGRAM(S), 2 IN 1 D ORAL
     Route: 048
     Dates: start: 20100416
  2. PHENOBARB (PHENOBARBITAL) [Concomitant]
  3. PROTONIX [Concomitant]
  4. KEPPRA [Concomitant]

REACTIONS (1)
  - DRUG INEFFECTIVE [None]
